FAERS Safety Report 25378855 (Version 2)
Quarter: 2025Q2

REPORT INFORMATION
  Report Type: Report from Study
  Country: US (occurrence: US)
  Receive Date: 20250530
  Receipt Date: 20250612
  Transmission Date: 20250716
  Serious: Yes (Hospitalization, Other)
  Sender: TAKEDA
  Company Number: US-TAKEDA-2025TUS007446

PATIENT
  Age: 85 Year
  Sex: Female

DRUGS (1)
  1. VEDOLIZUMAB [Suspect]
     Active Substance: VEDOLIZUMAB
     Indication: Colitis ulcerative

REACTIONS (4)
  - Colitis ulcerative [Unknown]
  - Product dose omission issue [Unknown]
  - Inappropriate schedule of product administration [Unknown]
  - Joint injury [Not Recovered/Not Resolved]

NARRATIVE: CASE EVENT DATE: 20250524
